FAERS Safety Report 4585870-9 (Version None)
Quarter: 2005Q1

REPORT INFORMATION
  Report Type: 
  Country: None (occurrence: None)
  Receive Date: 20050214
  Receipt Date: 20050203
  Transmission Date: 20050727
  Serious: Yes (Death)
  Sender: FDA-Public Use
  Company Number: BUS-022005-004

PATIENT
  Age: 15 Year
  Sex: Male

DRUGS (5)
  1. BUSULFEX [Suspect]
     Indication: ACUTE LYMPHOCYTIC LEUKAEMIA
     Dosage: 160MG/DAY (40MG/DOS X 4 TIMES)IV
     Route: 042
     Dates: start: 20030614, end: 20030621
  2. FLUDARABINE PHOSPHATE [Concomitant]
  3. PHENYTOIN [Concomitant]
  4. ZOFRAN [Concomitant]
  5. ANTIBIOTICS, IMMUNOSUPPRESSANTS [Concomitant]

REACTIONS (4)
  - LEUKAEMIA [None]
  - MALIGNANT NEOPLASM PROGRESSION [None]
  - TUMOUR LYSIS SYNDROME [None]
  - WHITE BLOOD CELL COUNT INCREASED [None]
